FAERS Safety Report 8808774 (Version 1)
Quarter: 2012Q4

REPORT INFORMATION
  Report Type: Report from Study
  Country: US (occurrence: US)
  Receive Date: 20120926
  Receipt Date: 20120926
  Transmission Date: 20130627
  Serious: Yes (Hospitalization)
  Sender: FDA-Public Use
  Company Number: US-UCBSA-051753

PATIENT
  Age: 57 Year
  Sex: Female
  Weight: 81.65 kg

DRUGS (13)
  1. CERTOLIZUMAB PEGOL [Suspect]
     Indication: CROHN^S DISEASE
     Route: 058
     Dates: start: 20081208
  2. DEXILANT [Concomitant]
     Route: 048
  3. AMBIEN [Concomitant]
     Dosage: DAILY
     Route: 048
  4. TOPROL XL [Concomitant]
     Dosage: DAILY
     Route: 048
  5. SYNTHROID [Concomitant]
     Dosage: DAILY DOSE: 100 MCG
     Route: 048
  6. WELLBUTRIN [Concomitant]
     Dosage: DAILY
     Route: 048
  7. AMLODIPINE CHLOROHYDRATE [Concomitant]
     Dosage: DAILY
     Route: 048
  8. CHLORAL HYDRATE [Concomitant]
     Indication: SLEEP DISORDER
  9. BENTYL [Concomitant]
     Dosage: 10 MG AC AND AT BEDTIME FOR 2 WEEKS
  10. ACETAMINOPHEN [Concomitant]
     Indication: CROHN^S DISEASE
  11. PRILOSEC [Concomitant]
     Indication: GASTROOESOPHAGEAL REFLUX DISEASE
  12. FLAGYL [Concomitant]
     Dosage: 10 DAYS
  13. LEVAQUIN [Concomitant]
     Dosage: 500 MG 10 DAYS

REACTIONS (1)
  - Gastroenteritis [Recovered/Resolved]
